FAERS Safety Report 17910533 (Version 2)
Quarter: 2020Q2

REPORT INFORMATION
  Report Type: Spontaneous
  Country: DE (occurrence: DE)
  Receive Date: 20200618
  Receipt Date: 20200625
  Transmission Date: 20200714
  Serious: Yes (Hospitalization, Other)
  Sender: FDA-Public Use
  Company Number: DE-LUPIN PHARMACEUTICALS INC.-2020-02871

PATIENT
  Age: 54 Year
  Sex: Female

DRUGS (13)
  1. VALPROIC ACID. [Interacting]
     Active Substance: VALPROIC ACID
     Dosage: 1050 MILLIGRAM, UNK
     Route: 065
  2. SERTRALINE [Concomitant]
     Active Substance: SERTRALINE HYDROCHLORIDE
     Dosage: UNK, DECREASED
     Route: 065
  3. QUETIAPINE. [Interacting]
     Active Substance: QUETIAPINE
     Dosage: UNK (DOSE DECREASED)
     Route: 065
  4. SERTRALINE [Concomitant]
     Active Substance: SERTRALINE HYDROCHLORIDE
     Indication: SCHIZOAFFECTIVE DISORDER
     Dosage: 50 MILLIGRAM, UNK
     Route: 065
  5. VALPROIC ACID. [Interacting]
     Active Substance: VALPROIC ACID
     Indication: SCHIZOAFFECTIVE DISORDER
     Dosage: UNK
     Route: 065
     Dates: start: 2012
  6. OLANZAPINE. [Concomitant]
     Active Substance: OLANZAPINE
     Indication: SCHIZOAFFECTIVE DISORDER
     Dosage: UNK
     Route: 065
     Dates: start: 2012
  7. QUETIAPINE. [Suspect]
     Active Substance: QUETIAPINE
     Indication: SCHIZOAFFECTIVE DISORDER
     Dosage: 400 MILLIGRAM, UNK
     Route: 065
  8. MIRTAZAPINE. [Concomitant]
     Active Substance: MIRTAZAPINE
     Indication: SCHIZOAFFECTIVE DISORDER
     Dosage: UNK
     Route: 065
     Dates: start: 2012
  9. ARIPIPRAZOLE. [Concomitant]
     Active Substance: ARIPIPRAZOLE
     Indication: SCHIZOAFFECTIVE DISORDER
     Dosage: 5 MILLIGRAM, UNK
     Route: 065
  10. QUETIAPINE. [Interacting]
     Active Substance: QUETIAPINE
     Dosage: 50 MILLIGRAM, UNK (NON-RETARD)
     Route: 065
  11. VALPROIC ACID. [Interacting]
     Active Substance: VALPROIC ACID
     Dosage: 600 MILLIGRAM, BID (INCREASED)
     Route: 065
     Dates: start: 2014
  12. QUETIAPINE. [Interacting]
     Active Substance: QUETIAPINE
     Dosage: 600 MILLIGRAM, UNK (INCREASED)
     Route: 065
     Dates: start: 2014
  13. VALPROIC ACID. [Interacting]
     Active Substance: VALPROIC ACID
     Dosage: UNK (DOSE DECREASED)
     Route: 065

REACTIONS (9)
  - Visual acuity reduced [Recovering/Resolving]
  - Cognitive disorder [Recovering/Resolving]
  - Tremor [Recovering/Resolving]
  - Muscle rigidity [Recovering/Resolving]
  - Dizziness [Recovering/Resolving]
  - Balance disorder [Recovering/Resolving]
  - Gait disturbance [Recovering/Resolving]
  - Drug interaction [Unknown]
  - Memory impairment [Recovering/Resolving]
